FAERS Safety Report 6240025-7 (Version None)
Quarter: 2009Q2

REPORT INFORMATION
  Report Type: 
  Country: None (occurrence: None)
  Receive Date: 20090623
  Receipt Date: 20090611
  Transmission Date: 20091009
  Serious: Yes (Other)
  Sender: FDA-Public Use
  Company Number: IT-JNJFOC-20090604439

PATIENT

DRUGS (4)
  1. CAELYX [Suspect]
     Indication: MULTIPLE MYELOMA
     Route: 042
  2. VELCADE [Suspect]
     Indication: MULTIPLE MYELOMA
     Route: 065
  3. DEXAMETHASONE [Suspect]
     Indication: MULTIPLE MYELOMA
     Route: 065
  4. THALIDOMIDE [Suspect]
     Indication: MULTIPLE MYELOMA
     Route: 065

REACTIONS (1)
  - CEREBROVASCULAR ACCIDENT [None]
